FAERS Safety Report 6611588-4 (Version None)
Quarter: 2010Q1

REPORT INFORMATION
  Report Type: 
  Country: None (occurrence: None)
  Receive Date: 20100226
  Receipt Date: 20100226
  Transmission Date: 20100710
  Serious: Yes (Other)
  Sender: FDA-Public Use
  Company Number: None

PATIENT
  Age: 45 Year
  Sex: Female
  Weight: 70.3075 kg

DRUGS (1)
  1. CLONAZEPAM [Suspect]
     Indication: ADVERSE DRUG REACTION
     Dosage: 2 MG ONCE A DAY PO
     Route: 048
     Dates: start: 20030301, end: 20091124

REACTIONS (16)
  - APHASIA [None]
  - BEDRIDDEN [None]
  - DIZZINESS [None]
  - DRUG DEPENDENCE [None]
  - DRUG PRESCRIBING ERROR [None]
  - FATIGUE [None]
  - GASTROINTESTINAL DISORDER [None]
  - INSOMNIA [None]
  - MEMORY IMPAIRMENT [None]
  - NERVOUS SYSTEM DISORDER [None]
  - PAIN [None]
  - PRODUCT QUALITY ISSUE [None]
  - TREMOR [None]
  - UNEVALUABLE EVENT [None]
  - VISION BLURRED [None]
  - WITHDRAWAL SYNDROME [None]
